FAERS Safety Report 4354758-0 (Version None)
Quarter: 2004Q2

REPORT INFORMATION
  Report Type: 
  Country: None (occurrence: None)
  Receive Date: 20040507
  Receipt Date: 20040503
  Transmission Date: 20050107
  Serious: Yes (Hospitalization)
  Sender: FDA-Public Use
  Company Number: 200414659GDDC

PATIENT
  Age: 7 Year
  Sex: Male

DRUGS (1)
  1. MINIRIN [Suspect]
     Indication: ENURESIS
     Route: 045
     Dates: start: 20031014, end: 20031015

REACTIONS (5)
  - CONFUSIONAL STATE [None]
  - GENERALISED NON-CONVULSIVE EPILEPSY [None]
  - NAUSEA [None]
  - SOMNOLENCE [None]
  - VOMITING [None]
